FAERS Safety Report 17509510 (Version 1)
Quarter: 2020Q1

REPORT INFORMATION
  Report Type: Report from Study
  Country: None (occurrence: US)
  Receive Date: 20200306
  Receipt Date: 20200306
  Transmission Date: 20200409
  Serious: Yes (Hospitalization, Other)
  Sender: FDA-Public Use
  Company Number: US-ABBVIE-20K-163-3301261-00

PATIENT
  Sex: Male

DRUGS (2)
  1. DIOVAN [Concomitant]
     Active Substance: VALSARTAN
     Indication: PRODUCT USED FOR UNKNOWN INDICATION
  2. HUMIRA [Suspect]
     Active Substance: ADALIMUMAB
     Indication: RHEUMATOID ARTHRITIS
     Route: 058

REACTIONS (6)
  - Pneumonia [Unknown]
  - Pain [Unknown]
  - Cholecystectomy [Unknown]
  - Atrial fibrillation [Unknown]
  - Haemochromatosis [Unknown]
  - Sepsis [Unknown]
